FAERS Safety Report 21496361 (Version 2)
Quarter: 2025Q3

REPORT INFORMATION
  Report Type: Spontaneous
  Country: EU (occurrence: EU)
  Receive Date: 20221022
  Receipt Date: 20250705
  Transmission Date: 20251020
  Serious: Yes (Other)
  Sender: AUROBINDO
  Company Number: EU-PFIZER INC-PV202200044756

PATIENT
  Age: 54 Year
  Sex: Female

DRUGS (10)
  1. ALPRAZOLAM [Suspect]
     Active Substance: ALPRAZOLAM
     Indication: Insomnia
     Route: 065
  2. ALPRAZOLAM [Suspect]
     Active Substance: ALPRAZOLAM
     Dosage: 1 MILLIGRAM, 3 TIMES A DAY
  3. ZOLPIDEM [Suspect]
     Active Substance: ZOLPIDEM TARTRATE
     Indication: Insomnia
     Route: 065
  4. ZOLPIDEM [Suspect]
     Active Substance: ZOLPIDEM TARTRATE
     Route: 065
  5. ACEMETACIN [Suspect]
     Active Substance: ACEMETACIN
     Indication: Rheumatoid arthritis
     Route: 065
  6. ACEMETACIN [Suspect]
     Active Substance: ACEMETACIN
     Dosage: 90 MILLIGRAM, ONCE A DAY
     Route: 065
  7. ESTAZOLAM [Suspect]
     Active Substance: ESTAZOLAM
     Indication: Insomnia
  8. ESTAZOLAM [Suspect]
     Active Substance: ESTAZOLAM
  9. METHOTREXATE [Suspect]
     Active Substance: METHOTREXATE
     Indication: Rheumatoid arthritis
     Dosage: 10 MILLIGRAM, EVERY WEEK
     Route: 065
  10. METHYLPREDNISOLONE [Suspect]
     Active Substance: METHYLPREDNISOLONE
     Indication: Rheumatoid arthritis
     Dosage: 4 MILLIGRAM, ONCE A DAY
     Route: 065

REACTIONS (3)
  - Drug ineffective [Unknown]
  - Drug dependence [Unknown]
  - Drug abuse [Unknown]
